FAERS Safety Report 9134267 (Version 1)
Quarter: 2013Q1

REPORT INFORMATION
  Report Type: Spontaneous
  Country: NO (occurrence: NO)
  Receive Date: 20130304
  Receipt Date: 20130304
  Transmission Date: 20140127
  Serious: Yes (Other)
  Sender: FDA-Public Use
  Company Number: NO-ENDO PHARMACEUTICALS INC.-VANT20110032

PATIENT
  Age: 85 Year
  Sex: Male

DRUGS (1)
  1. VANTAS [Suspect]
     Indication: PRODUCT USED FOR UNKNOWN INDICATION
     Route: 058
     Dates: start: 20110304

REACTIONS (2)
  - Blood testosterone increased [Unknown]
  - Procedural complication [Not Recovered/Not Resolved]
